FAERS Safety Report 15289449 (Version 1)
Quarter: 2018Q3

REPORT INFORMATION
  Report Type: Spontaneous
  Country: US (occurrence: US)
  Receive Date: 20180803
  Receipt Date: 20180803
  Transmission Date: 20181010
  Serious: Yes (Hospitalization)
  Sender: FDA-Public Use
  Company Number: None

PATIENT
  Sex: Female

DRUGS (19)
  1. MEDROXYPR AC [Concomitant]
  2. ZOLOFT [Concomitant]
     Active Substance: SERTRALINE HYDROCHLORIDE
  3. ARAVA [Concomitant]
     Active Substance: LEFLUNOMIDE
  4. ELIQUIS [Concomitant]
     Active Substance: APIXABAN
  5. LEVOTHYROXIN [Concomitant]
     Active Substance: LEVOTHYROXINE
  6. LOMOTIL [Concomitant]
     Active Substance: ATROPINE SULFATE\DIPHENOXYLATE HYDROCHLORIDE
  7. PREDNISONE. [Concomitant]
     Active Substance: PREDNISONE
  8. FIBER [Concomitant]
     Active Substance: PSYLLIUM HUSK
  9. GLUCOSAMINE [Concomitant]
     Active Substance: GLUCOSAMINE
  10. PLAQUENIL [Concomitant]
     Active Substance: HYDROXYCHLOROQUINE SULFATE
  11. SIMVASTATIN. [Concomitant]
     Active Substance: SIMVASTATIN
  12. OMEGA 3 [Concomitant]
     Active Substance: OMEGA-3 FATTY ACIDS
  13. WELCHOL [Concomitant]
     Active Substance: COLESEVELAM HYDROCHLORIDE
  14. ENBREL [Suspect]
     Active Substance: ETANERCEPT
     Indication: RHEUMATOID ARTHRITIS
     Route: 058
     Dates: start: 20171205
  15. ASPIRIN. [Concomitant]
     Active Substance: ASPIRIN
  16. CELEBREX [Concomitant]
     Active Substance: CELECOXIB
  17. TYLENOL PM [Concomitant]
     Active Substance: ACETAMINOPHEN\DIPHENHYDRAMINE
  18. CALCIUM +D [Concomitant]
     Active Substance: CALCIUM\VITAMIN D
  19. TRULICITY [Concomitant]
     Active Substance: DULAGLUTIDE

REACTIONS (1)
  - Drug dose omission [None]
